FAERS Safety Report 5408600-7 (Version None)
Quarter: 2007Q3

REPORT INFORMATION
  Report Type: 
  Country: None (occurrence: None)
  Receive Date: 20070808
  Receipt Date: 20070731
  Transmission Date: 20080115
  Serious: Yes (Disabling, Other)
  Sender: FDA-Public Use
  Company Number: US-ASTRAZENECA-2003UW04327

PATIENT
  Age: 811 Month
  Weight: 75 kg

DRUGS (16)
  1. ARIMIDEX [Suspect]
     Indication: BREAST CANCER
     Route: 048
     Dates: start: 20021101, end: 20050201
  2. ARIMIDEX [Suspect]
     Route: 048
  3. MULTIVITAMIN [Concomitant]
  4. MINERAL TAB [Concomitant]
  5. LIPITOR [Concomitant]
     Indication: HYPERCHOLESTEROLAEMIA
  6. CALCIUM CHLORIDE [Concomitant]
  7. FOSOMAX [Concomitant]
  8. OTHER OSTEOPOROTIC MEDICATION [Concomitant]
  9. COQ10 [Concomitant]
  10. VITAMIN B COMPLEX CAP [Concomitant]
  11. FISH OIL [Concomitant]
  12. ASCORBIC ACID [Concomitant]
  13. ONE A DAY [Concomitant]
  14. FOLIC ACID [Concomitant]
  15. ASPIRIN [Concomitant]
  16. LISINOPRIL [Concomitant]

REACTIONS (13)
  - BONE PAIN [None]
  - DENTAL CARIES [None]
  - FRACTURE [None]
  - INJURY [None]
  - ORAL CANDIDIASIS [None]
  - ORAL INFECTION [None]
  - OSTEOPENIA [None]
  - PERIODONTAL DISEASE [None]
  - PERIODONTITIS [None]
  - RESORPTION BONE INCREASED [None]
  - TOOTH INJURY [None]
  - TOOTH LOSS [None]
  - WEIGHT DECREASED [None]
